FAERS Safety Report 25627250 (Version 1)
Quarter: 2025Q3

REPORT INFORMATION
  Report Type: Spontaneous
  Country: IN (occurrence: IN)
  Receive Date: 20250731
  Receipt Date: 20250731
  Transmission Date: 20251021
  Serious: Yes (Other)
  Sender: UCB
  Company Number: IN-UCBSA-2025046006

PATIENT
  Age: 1 Year
  Sex: Female

DRUGS (4)
  1. LEVETIRACETAM [Suspect]
     Active Substance: LEVETIRACETAM
     Indication: Tonic convulsion
  2. PREDNISOLONE [Concomitant]
     Active Substance: PREDNISOLONE
     Indication: Epilepsy
     Route: 048
  3. RISPERIDONE [Concomitant]
     Active Substance: RISPERIDONE
     Indication: Abnormal behaviour
  4. CLOBAZAM [Concomitant]
     Active Substance: CLOBAZAM
     Indication: Prophylaxis

REACTIONS (1)
  - Epilepsy [Recovering/Resolving]
